FAERS Safety Report 7481750-X (Version None)
Quarter: 2011Q2

REPORT INFORMATION
  Report Type: 
  Country: None (occurrence: None)
  Receive Date: 20110516
  Receipt Date: 20110510
  Transmission Date: 20111010
  Serious: Yes (Other)
  Sender: FDA-Public Use
  Company Number: B0714200A

PATIENT
  Sex: Male

DRUGS (3)
  1. EVIPROSTAT [Concomitant]
     Indication: BENIGN PROSTATIC HYPERPLASIA
     Route: 048
     Dates: start: 20100823, end: 20100906
  2. DUTASTERIDE [Suspect]
     Indication: BENIGN PROSTATIC HYPERPLASIA
     Dosage: .5MG PER DAY
     Route: 048
     Dates: start: 20100823, end: 20100830
  3. DUTASTERIDE [Suspect]
     Dosage: .5MG PER DAY
     Route: 048
     Dates: start: 20100906, end: 20110117

REACTIONS (9)
  - ERYTHEMA [None]
  - TONGUE DISCOLOURATION [None]
  - OEDEMA [None]
  - PAIN [None]
  - ABDOMINAL PAIN UPPER [None]
  - VOMITING [None]
  - CHEILITIS [None]
  - DRUG ERUPTION [None]
  - ECZEMA [None]
